FAERS Safety Report 4828366-9 (Version None)
Quarter: 2005Q4

REPORT INFORMATION
  Report Type: 
  Country: None (occurrence: None)
  Receive Date: 20051115
  Receipt Date: 20050929
  Transmission Date: 20060501
  Serious: Yes (Hospitalization, Other)
  Sender: FDA-Public Use
  Company Number: US-MERCK-0510USA00421

PATIENT
  Age: 74 Year
  Sex: Female
  Weight: 77 kg

DRUGS (1)
  1. VIOXX [Suspect]
     Indication: PAIN
     Route: 048
     Dates: start: 20010101, end: 20040630

REACTIONS (19)
  - ASCITES [None]
  - ATELECTASIS [None]
  - CEREBROVASCULAR ACCIDENT [None]
  - COLITIS COLLAGENOUS [None]
  - CONTUSION [None]
  - DIARRHOEA [None]
  - GASTROOESOPHAGEAL REFLUX DISEASE [None]
  - HAEMATOMA [None]
  - HYPOKALAEMIA [None]
  - PARKINSONISM [None]
  - PATHOLOGICAL FRACTURE [None]
  - PEPTIC ULCER HAEMORRHAGE [None]
  - PLEURAL EFFUSION [None]
  - POSTOPERATIVE ILEUS [None]
  - PULMONARY EMBOLISM [None]
  - RADIUS FRACTURE [None]
  - RESTLESS LEGS SYNDROME [None]
  - SKIN ULCER [None]
  - TARDIVE DYSKINESIA [None]
